FAERS Safety Report 9007785 (Version 1)
Quarter: 2013Q1

REPORT INFORMATION
  Report Type: Spontaneous
  Country: US (occurrence: US)
  Receive Date: 20130111
  Receipt Date: 20130111
  Transmission Date: 20140127
  Serious: No
  Sender: FDA-Public Use
  Company Number: US-009507513-1301USA001987

PATIENT
  Sex: Female

DRUGS (2)
  1. INTRONA [Suspect]
     Indication: HEPATITIS C
     Dosage: UNK
     Dates: start: 2000, end: 2000
  2. INTRONA [Suspect]
     Dosage: UNK
     Dates: start: 20010101, end: 20010107

REACTIONS (2)
  - Leukopenia [Unknown]
  - Vertigo [Unknown]
